FAERS Safety Report 8448655-9 (Version None)
Quarter: 2012Q2

REPORT INFORMATION
  Report Type: 
  Country: None (occurrence: None)
  Receive Date: 20120619
  Receipt Date: 20120604
  Transmission Date: 20120825
  Serious: Yes (Death, Other)
  Sender: FDA-Public Use
  Company Number: FR-CUBIST-2011S1000739

PATIENT
  Age: 62 Year
  Sex: Female
  Weight: 52 kg

DRUGS (6)
  1. CEFOTAXIME [Concomitant]
     Indication: PRODUCT USED FOR UNKNOWN INDICATION
     Dosage: DOSE UNIT:U UNKNOWN
     Route: 065
  2. RIFAMPICIN [Concomitant]
     Indication: PRODUCT USED FOR UNKNOWN INDICATION
     Dosage: DOSE UNIT:U UNKNOWN
     Route: 065
  3. GENTAMICIN SULFATE [Concomitant]
     Indication: PRODUCT USED FOR UNKNOWN INDICATION
     Dosage: DOSE UNIT:U UNKNOWN
     Route: 065
  4. CUBICIN [Suspect]
     Indication: ENDOCARDITIS
     Route: 065
  5. CUBICIN [Suspect]
     Indication: CARDIAC INFECTION
     Route: 065
  6. ERYTHROMYCIN [Concomitant]
     Indication: PRODUCT USED FOR UNKNOWN INDICATION
     Dosage: DOSE UNIT:U UNKNOWN
     Route: 065

REACTIONS (7)
  - CARDIAC FAILURE [None]
  - LACTIC ACIDOSIS [None]
  - STAPHYLOCOCCAL INFECTION [None]
  - ACUTE RESPIRATORY DISTRESS SYNDROME [None]
  - ACUTE LUNG INJURY [None]
  - HYPOTENSION [None]
  - HEART RATE INCREASED [None]
